FAERS Safety Report 8096188-4 (Version None)
Quarter: 2012Q1

REPORT INFORMATION
  Report Type: 
  Country: None (occurrence: None)
  Receive Date: 20120129
  Receipt Date: 20111220
  Transmission Date: 20120608
  Serious: No
  Sender: FDA-Public Use
  Company Number: US-ABBOTT-11P-163-0885479-00

PATIENT
  Age: 40 Year
  Sex: Female

DRUGS (6)
  1. KLONOPIN [Concomitant]
     Indication: ANXIETY
     Dosage: DAILY AT BEDTIME; OTHER UNSPECIFIED
  2. TRAZODONE HCL [Concomitant]
     Indication: INSOMNIA
     Dosage: DAILY AT BEDTIME
  3. KLONOPIN [Concomitant]
     Indication: INSOMNIA
  4. HUMIRA [Suspect]
     Indication: CROHN'S DISEASE
     Dates: start: 20110706
  5. REMERON [Concomitant]
     Indication: INSOMNIA
     Dosage: DAILY AT BEDTIME
  6. PROZAC [Concomitant]
     Indication: DEPRESSION
     Dosage: DAILY

REACTIONS (1)
  - NASOPHARYNGITIS [None]
